FAERS Safety Report 19845363 (Version 1)
Quarter: 2021Q3

REPORT INFORMATION
  Report Type: Report from Study
  Country: BR (occurrence: BR)
  Receive Date: 20210917
  Receipt Date: 20210917
  Transmission Date: 20211014
  Serious: Yes (Other)
  Sender: FDA-Public Use
  Company Number: NVSC2021BR136506

PATIENT
  Sex: Female

DRUGS (2)
  1. TASIGNA [Suspect]
     Active Substance: NILOTINIB
     Indication: CHRONIC MYELOID LEUKAEMIA
     Dosage: 400 MG, Q12H (TAKE 1 TABLET EVERY 12 HOURS, STARTED MORE OR LESS 3 MONTHS)
     Route: 065
  2. IMATINIB. [Suspect]
     Active Substance: IMATINIB MESYLATE
     Indication: CHRONIC MYELOID LEUKAEMIA
     Dosage: 400 MG, QD
     Route: 065

REACTIONS (11)
  - Poisoning [Unknown]
  - Skin plaque [Recovering/Resolving]
  - Pain in extremity [Recovering/Resolving]
  - Therapeutic response decreased [Unknown]
  - Feeling abnormal [Unknown]
  - Acne [Recovering/Resolving]
  - Skin plaque [Recovered/Resolved]
  - Skin burning sensation [Recovering/Resolving]
  - Dry skin [Recovering/Resolving]
  - Peripheral swelling [Unknown]
  - Paraesthesia [Recovering/Resolving]
